FAERS Safety Report 18055135 (Version 2)
Quarter: 2020Q3

REPORT INFORMATION
  Report Type: Report from Study
  Country: CO (occurrence: CO)
  Receive Date: 20200722
  Receipt Date: 20200819
  Transmission Date: 20201103
  Serious: Yes (Other)
  Sender: FDA-Public Use
  Company Number: NVSC2020CO189886

PATIENT
  Age: 54 Year
  Sex: Male
  Weight: 73 kg

DRUGS (3)
  1. JAKAVI [Suspect]
     Active Substance: RUXOLITINIB
     Indication: POLYCYTHAEMIA VERA
     Dosage: 15 MG, Q12H
     Route: 048
     Dates: start: 20170327
  2. ATORVASTATIN [Suspect]
     Active Substance: ATORVASTATIN
     Indication: PROPHYLAXIS
     Dosage: 20 MG, QD
     Route: 048
  3. LOSARTAN. [Suspect]
     Active Substance: LOSARTAN
     Indication: HYPERTENSION
     Dosage: 50 MG, QD
     Route: 048

REACTIONS (7)
  - Pyrexia [Recovered/Resolved]
  - Cough [Recovered/Resolved]
  - Blood uric acid abnormal [Unknown]
  - Haemoglobin increased [Unknown]
  - COVID-19 [Not Recovered/Not Resolved]
  - Chills [Recovered/Resolved]
  - Headache [Recovered/Resolved]

NARRATIVE: CASE EVENT DATE: 202006
